FAERS Safety Report 15813235 (Version 1)
Quarter: 2019Q1

REPORT INFORMATION
  Report Type: Spontaneous
  Country: US (occurrence: US)
  Receive Date: 20190111
  Receipt Date: 20190111
  Transmission Date: 20190417
  Serious: Yes (Hospitalization)
  Sender: FDA-Public Use
  Company Number: None

PATIENT
  Age: 43 Year
  Sex: Female

DRUGS (5)
  1. VENTOLIN HFA AER [Concomitant]
  2. OMEPRAZOLE, CREON, PREDNISONE [Concomitant]
  3. URSODIOL, DAPSONE, IMIQUIMOD CRE [Concomitant]
  4. TOBI PODHALER [Suspect]
     Active Substance: TOBRAMYCIN
     Indication: CYSTIC FIBROSIS
     Dosage: ?          OTHER FREQUENCY:Q12H FOR 28 DAYS;?
     Route: 055
     Dates: start: 20181208
  5. TACROLIMUS, POLYETH GLYC POW [Concomitant]

REACTIONS (2)
  - Cholelithiasis [None]
  - Liver disorder [None]

NARRATIVE: CASE EVENT DATE: 20181208
